FAERS Safety Report 7489659-2 (Version None)
Quarter: 2011Q2

REPORT INFORMATION
  Report Type: 
  Country: None (occurrence: None)
  Receive Date: 20110519
  Receipt Date: 20110511
  Transmission Date: 20111010
  Serious: No
  Sender: FDA-Public Use
  Company Number: US-BIOGENIDEC-2011BI012934

PATIENT
  Age: 50 Year
  Sex: Female

DRUGS (2)
  1. BENADRYL [Concomitant]
     Indication: PREMEDICATION
     Route: 042
  2. TYSABRI [Suspect]
     Indication: MULTIPLE SCLEROSIS
     Route: 042
     Dates: start: 20110331

REACTIONS (2)
  - FATIGUE [None]
  - URTICARIA [None]
